FAERS Safety Report 9245563 (Version 2)
Quarter: 2013Q2

REPORT INFORMATION
  Report Type: Report from Study
  Country: BR (occurrence: BR)
  Receive Date: 20130422
  Receipt Date: 20130429
  Transmission Date: 20140414
  Serious: Yes (Hospitalization, Other)
  Sender: FDA-Public Use
  Company Number: BR-ABBOTT-13P-020-1079543-00

PATIENT
  Sex: Female
  Weight: 46 kg

DRUGS (9)
  1. HUMIRA [Suspect]
     Indication: RHEUMATOID ARTHRITIS
     Route: 058
     Dates: start: 20080101, end: 2008
  2. HUMIRA [Suspect]
     Route: 058
     Dates: end: 2010
  3. HUMIRA [Suspect]
     Route: 058
  4. CALCIUM [Concomitant]
     Indication: BONE DISORDER
     Route: 048
     Dates: start: 1998
  5. PANTOPRAZOLE [Concomitant]
     Indication: GASTRIC DISORDER
     Route: 048
     Dates: start: 1998
  6. UNKNOWN MEDICATION [Concomitant]
     Indication: BLOOD PRESSURE ABNORMAL
     Route: 048
     Dates: start: 201301
  7. ARAVA [Concomitant]
     Indication: RHEUMATOID ARTHRITIS
     Dosage: ONE TABLET DAILY EXCEPT MONDAY AND FRIDAY
     Route: 048
     Dates: start: 1998
  8. PREDNISONE [Concomitant]
     Indication: RHEUMATOID ARTHRITIS
     Dosage: 5 MG DAILY
     Route: 048
     Dates: start: 1998
  9. CELEBRA [Concomitant]
     Indication: ANTIINFLAMMATORY THERAPY
     Route: 048
     Dates: start: 1998

REACTIONS (6)
  - Unevaluable event [Unknown]
  - Unevaluable event [Unknown]
  - Rhinitis [Recovering/Resolving]
  - Immunodeficiency [Recovered/Resolved]
  - Limb operation [Unknown]
  - Foot operation [Unknown]
